FAERS Safety Report 4638205-7 (Version None)
Quarter: 2005Q2

REPORT INFORMATION
  Report Type: 
  Country: None (occurrence: None)
  Receive Date: 20050418
  Receipt Date: 20050408
  Transmission Date: 20051028
  Serious: Yes (Other)
  Sender: FDA-Public Use
  Company Number: JP-ABBOTT-05P-087-0296903-00

PATIENT
  Age: 57 Year
  Sex: Male

DRUGS (1)
  1. EURODIN [Suspect]
     Indication: DRUG USE FOR UNKNOWN INDICATION
     Route: 048
     Dates: start: 20011101, end: 20011201

REACTIONS (2)
  - DRUG ERUPTION [None]
  - HEPATOTOXICITY [None]
